FAERS Safety Report 13584578 (Version 1)
Quarter: 2017Q2

REPORT INFORMATION
  Report Type: Spontaneous
  Country: US (occurrence: US)
  Receive Date: 20170526
  Receipt Date: 20170526
  Transmission Date: 20170830
  Serious: Yes (Life-Threatening, Hospitalization)
  Sender: FDA-Public Use
  Company Number: PHEH2017US015599

PATIENT
  Sex: Male

DRUGS (2)
  1. RYDAPT [Suspect]
     Active Substance: MIDOSTAURIN
     Indication: SYSTEMIC MASTOCYTOSIS
     Dosage: 100 MG, BID
     Route: 048
  2. RYDAPT [Suspect]
     Active Substance: MIDOSTAURIN
     Dosage: 100 MG, BID
     Route: 048

REACTIONS (1)
  - Gastrointestinal haemorrhage [Unknown]
